FAERS Safety Report 26172618 (Version 1)
Quarter: 2025Q4

REPORT INFORMATION
  Report Type: Spontaneous
  Country: TN (occurrence: TN)
  Receive Date: 20251218
  Receipt Date: 20251218
  Transmission Date: 20260117
  Serious: Yes (Other)
  Sender: ROCHE
  Company Number: TN-ROCHE-10000457799

PATIENT
  Age: 19 Year
  Sex: Female

DRUGS (4)
  1. RITUXIMAB [Suspect]
     Active Substance: RITUXIMAB
     Indication: Systemic lupus erythematosus
     Route: 042
     Dates: start: 20240529
  2. MYCOPHENOLATE MOFETIL [Suspect]
     Active Substance: MYCOPHENOLATE MOFETIL
     Indication: Systemic lupus erythematosus
  3. METHYLPREDNISOLONE [Suspect]
     Active Substance: METHYLPREDNISOLONE
     Indication: Systemic lupus erythematosus
  4. TERBINAFINE [Suspect]
     Active Substance: TERBINAFINE
     Indication: Onychomycosis

REACTIONS (2)
  - Onychomycosis [Unknown]
  - Toxic epidermal necrolysis [Recovered/Resolved]
